FAERS Safety Report 14615619 (Version 1)
Quarter: 2018Q1

REPORT INFORMATION
  Report Type: Report from Study
  Country: None (occurrence: CH)
  Receive Date: 20180309
  Receipt Date: 20180309
  Transmission Date: 20180509
  Serious: Yes (Other)
  Sender: FDA-Public Use
  Company Number: CH-ABBVIE-18K-151-2276971-00

PATIENT
  Age: 75 Year
  Sex: Male

DRUGS (17)
  1. DAFALGAN [Concomitant]
     Active Substance: ACETAMINOPHEN
     Indication: PRODUCT USED FOR UNKNOWN INDICATION
     Dosage: AT 8AM, 12PM, 6 PM, 9PM
     Route: 048
  2. EXELON [Concomitant]
     Active Substance: RIVASTIGMINE TARTRATE
     Indication: PRODUCT USED FOR UNKNOWN INDICATION
     Dosage: 9.5MG/24H
  3. CLEXANE [Concomitant]
     Active Substance: ENOXAPARIN SODIUM
     Indication: PRODUCT USED FOR UNKNOWN INDICATION
     Dosage: 0.2ML/20MG, AT 6PM
     Route: 058
  4. MADOPAR DR [Concomitant]
     Indication: PRODUCT USED FOR UNKNOWN INDICATION
  5. PICATO [Concomitant]
     Active Substance: INGENOL MEBUTATE
     Indication: PRODUCT USED FOR UNKNOWN INDICATION
     Route: 003
  6. VITAMIN D3 STREULI [Concomitant]
     Active Substance: CHOLECALCIFEROL
     Indication: PRODUCT USED FOR UNKNOWN INDICATION
     Dosage: 4000 IE /ML,  AT 8AM
  7. ASPIRIN CARDIO [Concomitant]
     Active Substance: ASPIRIN
     Indication: PRODUCT USED FOR UNKNOWN INDICATION
     Dosage: AT 8AM
     Route: 048
  8. PANTOZOL [Concomitant]
     Active Substance: PANTOPRAZOLE SODIUM
     Indication: PRODUCT USED FOR UNKNOWN INDICATION
     Dosage: AT 8AM
     Route: 048
  9. ZESTRIL [Concomitant]
     Active Substance: LISINOPRIL
     Indication: PRODUCT USED FOR UNKNOWN INDICATION
     Dosage: AT 8 AM
     Route: 048
  10. DUODOPA [Suspect]
     Active Substance: CARBIDOPA\LEVODOPA
     Indication: PARKINSON^S DISEASE
     Dosage: MD 3.0ML?CD DAY 4.0ML/H?CD NIGHT 2.0ML/H?ED 2.4ML UP TO 4 TIMES A DAY
     Route: 050
  11. FERRUM HAUSMANN [Concomitant]
     Active Substance: FERROUS FUMARATE
     Indication: PRODUCT USED FOR UNKNOWN INDICATION
     Dosage: AT 8AM
     Route: 048
  12. TARGIN [Concomitant]
     Active Substance: NALOXONE HYDROCHLORIDE\OXYCODONE HYDROCHLORIDE
     Indication: PRODUCT USED FOR UNKNOWN INDICATION
  13. DUODOPA [Suspect]
     Active Substance: CARBIDOPA\LEVODOPA
     Dosage: MD 3.0ML?CD DAY 3.8ML/H?CD NIGHT 2.0ML/H?ED 2.4ML UP TO 4 TIMES A DAY
     Route: 050
  14. TORASEMID [Concomitant]
     Active Substance: TORSEMIDE
     Indication: PRODUCT USED FOR UNKNOWN INDICATION
     Dosage: AT 8AM
     Route: 048
  15. EXELON [Concomitant]
     Active Substance: RIVASTIGMINE TARTRATE
     Dosage: REDUCED DOSING, AT 8AM
  16. DULCOLAX NOS [Concomitant]
     Active Substance: BISACODYL OR DOCUSATE SODIUM
     Indication: PRODUCT USED FOR UNKNOWN INDICATION
     Dosage: AT 8AM
  17. MOVICOL [Concomitant]
     Active Substance: POLYETHYLENE GLYCOL 3350\POTASSIUM CHLORIDE\SODIUM BICARBONATE\SODIUM CHLORIDE
     Indication: PRODUCT USED FOR UNKNOWN INDICATION
     Dosage: SACHET, AT 9AM, 2PM
     Route: 048

REACTIONS (13)
  - Urinary tract obstruction [Unknown]
  - Hallucination [Unknown]
  - Confusional state [Unknown]
  - Mental disorder [Unknown]
  - Dyskinesia [Unknown]
  - Skin lesion [Unknown]
  - Iron deficiency [Unknown]
  - Paranoia [Unknown]
  - Normochromic normocytic anaemia [Unknown]
  - General physical health deterioration [Unknown]
  - Basal cell carcinoma [Unknown]
  - Diverticulum intestinal [Unknown]
  - Dementia [Unknown]

NARRATIVE: CASE EVENT DATE: 201709
